FAERS Safety Report 9779959 (Version 1)
Quarter: 2013Q4

REPORT INFORMATION
  Report Type: Spontaneous
  Country: US (occurrence: US)
  Receive Date: 20131223
  Receipt Date: 20131223
  Transmission Date: 20140711
  Serious: Yes (Other)
  Sender: FDA-Public Use
  Company Number: US-PFIZER INC-2013366140

PATIENT
  Age: 64 Year
  Sex: Female
  Weight: 73.47 kg

DRUGS (2)
  1. IBUPROFEN [Suspect]
     Indication: PAIN
     Dosage: 800 MG, UNK
  2. PREDNISONE [Suspect]
     Indication: POLYMYALGIA RHEUMATICA
     Dosage: UNK

REACTIONS (1)
  - Vitreous detachment [Unknown]
